FAERS Safety Report 4433452-1 (Version None)
Quarter: 2004Q3

REPORT INFORMATION
  Report Type: 
  Country: None (occurrence: None)
  Receive Date: 20040824
  Receipt Date: 20040824
  Transmission Date: 20050211
  Serious: Yes (Death)
  Sender: FDA-Public Use
  Company Number: None

PATIENT
  Age: 48 Year
  Sex: Male

DRUGS (2)
  1. THYMOGLOBULIN [Suspect]
     Indication: HEART TRANSPLANT
     Dosage: 150 MG 24 INTRAVENOUS
     Route: 042
     Dates: start: 20040721, end: 20040721
  2. APROTONIN [Concomitant]

REACTIONS (9)
  - HYPERSENSITIVITY [None]
  - HYPOTENSION [None]
  - LUNG INFECTION PSEUDOMONAL [None]
  - PHARMACEUTICAL PRODUCT COMPLAINT [None]
  - POST PROCEDURAL COMPLICATION [None]
  - PROCEDURAL COMPLICATION [None]
  - PSEUDOMONAL SEPSIS [None]
  - RENAL FAILURE ACUTE [None]
  - SHOCK [None]
